FAERS Safety Report 6720711-2 (Version None)
Quarter: 2010Q2

REPORT INFORMATION
  Report Type: 
  Country: None (occurrence: None)
  Receive Date: 20100511
  Receipt Date: 20100503
  Transmission Date: 20101027
  Serious: Yes (Hospitalization)
  Sender: FDA-Public Use
  Company Number: ES-ABBOTT-10P-144-0641823-00

PATIENT
  Age: 61 Year
  Sex: Male

DRUGS (3)
  1. KALETRA [Suspect]
     Indication: HIV INFECTION CDC GROUP III
     Route: 048
     Dates: start: 20081030, end: 20090824
  2. TRUVADA [Interacting]
     Indication: HIV INFECTION CDC GROUP III
     Route: 048
     Dates: start: 20081030, end: 20090824
  3. SINTROM [Interacting]
     Indication: ATRIAL FIBRILLATION
     Route: 048

REACTIONS (2)
  - DRUG INTERACTION [None]
  - RENAL TUBULAR NECROSIS [None]
